FAERS Safety Report 13735017 (Version 1)
Quarter: 2017Q3

REPORT INFORMATION
  Report Type: Spontaneous
  Country: US (occurrence: US)
  Receive Date: 20170710
  Receipt Date: 20170710
  Transmission Date: 20171127
  Serious: Yes (Hospitalization)
  Sender: FDA-Public Use
  Company Number: US-BEH-2017081887

PATIENT
  Age: 68 Year
  Sex: Female
  Weight: 74.38 kg

DRUGS (24)
  1. EPIPEN [Concomitant]
     Active Substance: EPINEPHRINE
  2. FLONASE [Concomitant]
     Active Substance: FLUTICASONE PROPIONATE
  3. HIZENTRA [Suspect]
     Active Substance: HUMAN IMMUNOGLOBULIN G
     Dosage: UNK
     Route: 058
  4. LETROZOLE. [Concomitant]
     Active Substance: LETROZOLE
  5. MYRBETRIQ [Concomitant]
     Active Substance: MIRABEGRON
  6. HIZENTRA [Suspect]
     Active Substance: HUMAN IMMUNOGLOBULIN G
     Dosage: UNK
     Route: 058
  7. ADVAIR HFA [Concomitant]
     Active Substance: FLUTICASONE PROPIONATE\SALMETEROL XINAFOATE
  8. METOPROLOL SUCCINATE. [Concomitant]
     Active Substance: METOPROLOL SUCCINATE
  9. WARFARIN [Concomitant]
     Active Substance: WARFARIN
  10. XARELTO [Concomitant]
     Active Substance: RIVAROXABAN
  11. DIPHENHYDRAMINE. [Concomitant]
     Active Substance: DIPHENHYDRAMINE
  12. AZELASTINE [Concomitant]
     Active Substance: AZELASTINE
  13. ALLOPURINOL. [Concomitant]
     Active Substance: ALLOPURINOL
  14. ISOSORBIDE DINITRA [Concomitant]
  15. HYDRALAZINE [Concomitant]
     Active Substance: HYDRALAZINE HYDROCHLORIDE
  16. FUROSEMIDE. [Concomitant]
     Active Substance: FUROSEMIDE
  17. ZITHROMAX [Concomitant]
     Active Substance: AZITHROMYCIN DIHYDRATE
  18. LMX                                /00033401/ [Concomitant]
  19. NEXIUM [Concomitant]
     Active Substance: ESOMEPRAZOLE MAGNESIUM
  20. HIZENTRA [Suspect]
     Active Substance: HUMAN IMMUNOGLOBULIN G
     Indication: IMMUNODEFICIENCY
     Dosage: 10 G, UNK
     Route: 058
     Dates: start: 20131030
  21. DIGOXIN. [Concomitant]
     Active Substance: DIGOXIN
  22. GABAPENTIN. [Concomitant]
     Active Substance: GABAPENTIN
  23. SINGULAIR [Concomitant]
     Active Substance: MONTELUKAST SODIUM
  24. TRAMADOL. [Concomitant]
     Active Substance: TRAMADOL

REACTIONS (1)
  - Arrhythmia [Unknown]
